FAERS Safety Report 9342305 (Version 1)
Quarter: 2013Q2

REPORT INFORMATION
  Report Type: Spontaneous
  Country: US (occurrence: None)
  Receive Date: 20130607
  Receipt Date: 20130607
  Transmission Date: 20140414
  Serious: Yes (Hospitalization)
  Sender: FDA-Public Use
  Company Number: 2013050109

PATIENT
  Age: 99 Year
  Sex: Female

DRUGS (4)
  1. ZOLPIDEM [Suspect]
     Indication: DEPRESSION
     Dosage: 10 MG (10 MG, 1 IN 1 D), ORAL
     Route: 048
     Dates: start: 20130219, end: 20130309
  2. LASIX (FUROSEMIDE) [Suspect]
     Indication: HYPERTENSION
     Dosage: 125 MG (125 MG, 1 IN 1 D), ORAL
     Route: 048
     Dates: start: 20130101, end: 20130309
  3. ALDACTONE (SPIRONOLACTONE) [Concomitant]
  4. LANOXIN (DIGOXIN) [Concomitant]

REACTIONS (3)
  - Hypokalaemia [None]
  - Hyponatraemia [None]
  - Medication error [None]
